FAERS Safety Report 18863843 (Version 2)
Quarter: 2021Q1

REPORT INFORMATION
  Report Type: Spontaneous
  Country: US (occurrence: US)
  Receive Date: 20210209
  Receipt Date: 20210303
  Transmission Date: 20210420
  Serious: Yes (Hospitalization)
  Sender: FDA-Public Use
  Company Number: US-ASTRAZENECA-2021A026737

PATIENT
  Age: 24381 Day
  Sex: Female
  Weight: 59.9 kg

DRUGS (1)
  1. BREZTRI AEROSPHERE [Suspect]
     Active Substance: BUDESONIDE\FORMOTEROL\GLYCOPYRRONIUM
     Indication: CHRONIC OBSTRUCTIVE PULMONARY DISEASE
     Dosage: 160 MCG 9 MCG AND 4.8 MCG, ONE PUFF TWICE DAILY
     Route: 055
     Dates: start: 202012

REACTIONS (8)
  - Intentional device misuse [Unknown]
  - Drug delivery system malfunction [Unknown]
  - Wrong technique in device usage process [Unknown]
  - Feeling abnormal [Unknown]
  - Incorrect dose administered by device [Unknown]
  - Off label use [Unknown]
  - COVID-19 [Unknown]
  - Lung disorder [Unknown]

NARRATIVE: CASE EVENT DATE: 20210130
